FAERS Safety Report 6406443-9 (Version None)
Quarter: 2009Q4

REPORT INFORMATION
  Report Type: 
  Country: None (occurrence: None)
  Receive Date: 20091014
  Receipt Date: 20091005
  Transmission Date: 20100525
  Serious: Yes (Other)
  Sender: FDA-Public Use
  Company Number: SPV1-2009-01955

PATIENT
  Age: 32 Year
  Sex: Female
  Weight: 63.5 kg

DRUGS (3)
  1. VYVANSE [Suspect]
     Indication: ATTENTION DEFICIT/HYPERACTIVITY DISORDER
     Dosage: 20 MG, 1X/DAY:QD, ORAL
     Route: 048
     Dates: start: 20090930, end: 20090930
  2. NEXIUM /01479302/ (ESOMEPRAZOLE MAGNESIUM) CAPSULE [Concomitant]
  3. XANAX [Concomitant]

REACTIONS (3)
  - ANAPHYLACTIC SHOCK [None]
  - CONDITION AGGRAVATED [None]
  - CROHN'S DISEASE [None]
